FAERS Safety Report 8934448 (Version 1)
Quarter: 2012Q4

REPORT INFORMATION
  Report Type: 
  Country: US (occurrence: US)
  Receive Date: 20121128
  Receipt Date: 20121128
  Transmission Date: 20130627
  Serious: No
  Sender: FDA-Public Use
  Company Number: US-009507513-1211USA008212

PATIENT
  Sex: Male

DRUGS (2)
  1. SIMVASTATIN TABLETS, USP [Suspect]
     Dosage: UNK
     Dates: end: 20121018
  2. ENZALUTAMIDE [Suspect]
     Dosage: 160 mg, UID/qd
     Dates: start: 20121009, end: 20121018

REACTIONS (1)
  - Pain in extremity [Unknown]
